FAERS Safety Report 6746774-6 (Version None)
Quarter: 2010Q2

REPORT INFORMATION
  Report Type: 
  Country: None (occurrence: None)
  Receive Date: 20100528
  Receipt Date: 20090929
  Transmission Date: 20101027
  Serious: No
  Sender: FDA-Public Use
  Company Number: A0809558A

PATIENT
  Sex: Male

DRUGS (7)
  1. VENTOLIN [Suspect]
     Indication: EMPHYSEMA
     Dosage: 2PUFF THREE TIMES PER DAY
     Route: 055
     Dates: start: 20090802
  2. HYDROCODONE [Concomitant]
  3. NAPROXEN [Concomitant]
  4. GLIPIZIDE [Concomitant]
  5. METOPROLOL [Concomitant]
  6. FENTANYL [Concomitant]
  7. CEPHALEXIN [Concomitant]

REACTIONS (5)
  - ABDOMINAL PAIN UPPER [None]
  - ARTHRALGIA [None]
  - DIARRHOEA [None]
  - HYPERSENSITIVITY [None]
  - INFLUENZA LIKE ILLNESS [None]
